FAERS Safety Report 14582654 (Version 9)
Quarter: 2018Q3

REPORT INFORMATION
  Report Type: Spontaneous
  Country: US (occurrence: US)
  Receive Date: 20180228
  Receipt Date: 20180918
  Transmission Date: 20181010
  Serious: Yes (Other)
  Sender: FDA-Public Use
  Company Number: US-PFIZER INC-2018083023

PATIENT
  Age: 63 Year
  Sex: Female
  Weight: 90.7 kg

DRUGS (12)
  1. CELEBREX [Concomitant]
     Active Substance: CELECOXIB
     Indication: ARTHRITIS
     Dosage: UNK
  2. LYRICA [Suspect]
     Active Substance: PREGABALIN
     Indication: NEURALGIA
     Dosage: 150 MG, EVERY 8 HOURS (THRICE A DAY)
     Route: 048
  3. LYRICA [Suspect]
     Active Substance: PREGABALIN
     Dosage: 150 MG, EVERY 8 HOURS (3X/DAY)
  4. LYRICA [Suspect]
     Active Substance: PREGABALIN
     Dosage: 150 MG, 3X/DAY
  5. LYRICA [Suspect]
     Active Substance: PREGABALIN
     Dosage: 150 MG, 3X/DAY (EVERY 8 HOURS)
     Route: 048
     Dates: start: 2007
  6. LYRICA [Suspect]
     Active Substance: PREGABALIN
     Dosage: UNK
  7. PREVACID [Concomitant]
     Active Substance: LANSOPRAZOLE
     Indication: GASTROOESOPHAGEAL REFLUX DISEASE
     Dosage: UNK
  8. LYRICA [Suspect]
     Active Substance: PREGABALIN
     Dosage: 100 MG, EVERY 8 HOURS (3X/DAY)
  9. CYMBALTA [Concomitant]
     Active Substance: DULOXETINE HYDROCHLORIDE
     Indication: PAIN
     Dosage: 60 MG, 1X/DAY
  10. LYRICA [Suspect]
     Active Substance: PREGABALIN
     Indication: NOCARDIOSIS
     Dosage: 50 MG, EVERY 8 HOURS (THRICE A DAY)
  11. LYRICA [Suspect]
     Active Substance: PREGABALIN
     Dosage: UNK, 2X/DAY (STARTED TAKING 2 A DAY)
  12. XARELTO [Concomitant]
     Active Substance: RIVAROXABAN
     Indication: PULMONARY EMBOLISM
     Dosage: UNK

REACTIONS (23)
  - Suicidal ideation [Unknown]
  - Drug effect incomplete [Unknown]
  - Feeling abnormal [Unknown]
  - Insomnia [Unknown]
  - Movement disorder [Unknown]
  - Withdrawal syndrome [Not Recovered/Not Resolved]
  - Restless legs syndrome [Unknown]
  - Peripheral coldness [Unknown]
  - Intentional product use issue [Unknown]
  - Affect lability [Unknown]
  - Pain [Unknown]
  - Intentional product misuse [Unknown]
  - Hypoaesthesia [Recovering/Resolving]
  - Burning sensation [Unknown]
  - Migraine [Unknown]
  - Condition aggravated [Unknown]
  - Muscular weakness [Unknown]
  - Body height decreased [Unknown]
  - Headache [Unknown]
  - Drug dependence [Not Recovered/Not Resolved]
  - Nerve conduction studies abnormal [Unknown]
  - Hyperhidrosis [Unknown]
  - Discomfort [Unknown]

NARRATIVE: CASE EVENT DATE: 2017
